FAERS Safety Report 9421269 (Version 2)
Quarter: 2014Q1

REPORT INFORMATION
  Report Type: Spontaneous
  Country: US (occurrence: US)
  Receive Date: 20130725
  Receipt Date: 20140102
  Transmission Date: 20141002
  Serious: Yes (Death, Hospitalization)
  Sender: FDA-Public Use
  Company Number: US-B.I. PHARMACEUTICALS,INC./RIDGEFIELD-2013-BI-21818BP

PATIENT
  Sex: Male
  Weight: 86.18 kg

DRUGS (7)
  1. PRADAXA [Suspect]
     Dosage: 300 MG
     Dates: start: 20101110, end: 20120413
  2. XANAX [Concomitant]
  3. DILTIAZEM [Concomitant]
  4. LASIX [Concomitant]
  5. POTASSIUM [Concomitant]
  6. OMEPRAZOLE [Concomitant]
  7. AMBIEN [Concomitant]

REACTIONS (9)
  - Subdural haematoma [Fatal]
  - Respiratory failure [Fatal]
  - Coagulopathy [Fatal]
  - Renal failure acute [Fatal]
  - Sepsis [Fatal]
  - Epistaxis [Unknown]
  - Mouth haemorrhage [Unknown]
  - Fall [Unknown]
  - Contusion [Unknown]
